FAERS Safety Report 22619507 (Version 1)
Quarter: 2023Q2

REPORT INFORMATION
  Report Type: Spontaneous
  Country: GB (occurrence: GB)
  Receive Date: 20230620
  Receipt Date: 20230620
  Transmission Date: 20230721
  Serious: Yes (Other)
  Sender: FDA-Public Use
  Company Number: GB-ABBVIE-5296947

PATIENT
  Sex: Female

DRUGS (1)
  1. PRED FORTE [Suspect]
     Active Substance: PREDNISOLONE ACETATE
     Indication: Cystoid macular oedema
     Route: 065

REACTIONS (3)
  - Surgery [Unknown]
  - Product temperature excursion issue [Unknown]
  - Off label use [Unknown]

NARRATIVE: CASE EVENT DATE: 20230601
